FAERS Safety Report 16290769 (Version 4)
Quarter: 2022Q1

REPORT INFORMATION
  Report Type: Spontaneous
  Country: US (occurrence: US)
  Receive Date: 20190509
  Receipt Date: 20220308
  Transmission Date: 20220423
  Serious: Yes (Hospitalization)
  Sender: FDA-Public Use
  Company Number: US-PFIZER INC-2019067254

PATIENT
  Age: 68 Year
  Sex: Female

DRUGS (1)
  1. IBRANCE [Suspect]
     Active Substance: PALBOCICLIB
     Indication: Breast cancer female
     Dosage: 125 MG

REACTIONS (8)
  - Intestinal obstruction [Unknown]
  - Product dose omission issue [Unknown]
  - Onychalgia [Unknown]
  - Nail disorder [Unknown]
  - Peripheral swelling [Unknown]
  - Amnesia [Unknown]
  - Neoplasm recurrence [Unknown]
  - Pain in extremity [Unknown]
